FAERS Safety Report 6545805-6 (Version None)
Quarter: 2010Q1

REPORT INFORMATION
  Report Type: 
  Country: None (occurrence: None)
  Receive Date: 20100121
  Receipt Date: 20100114
  Transmission Date: 20100710
  Serious: Yes (Other)
  Sender: FDA-Public Use
  Company Number: US-AMGEN-QUU357219

PATIENT
  Sex: Female
  Weight: 97.6 kg

DRUGS (5)
  1. ENBREL [Suspect]
     Indication: RHEUMATOID ARTHRITIS
     Route: 058
  2. LIPITOR [Concomitant]
  3. ULTRAM [Concomitant]
  4. ENABLEX [Concomitant]
  5. TOPROL-XL [Concomitant]

REACTIONS (2)
  - CARDIAC DISORDER [None]
  - INTERNATIONAL NORMALISED RATIO DECREASED [None]
